FAERS Safety Report 9557827 (Version 1)
Quarter: 2013Q3

REPORT INFORMATION
  Report Type: Spontaneous
  Country: US (occurrence: US)
  Receive Date: 20130926
  Receipt Date: 20130926
  Transmission Date: 20140515
  Serious: Yes (Hospitalization)
  Sender: FDA-Public Use
  Company Number: US-FRI-1000049098

PATIENT
  Age: 58 Year
  Sex: Female

DRUGS (3)
  1. LINZESS [Suspect]
     Indication: CONSTIPATION
     Dosage: 290 MCG
     Route: 048
     Dates: start: 201303
  2. VALPROIC ACID [Concomitant]
     Indication: PARTIAL SEIZURES
     Dosage: BID
  3. XANAX [Concomitant]
     Indication: ANXIETY
     Dosage: DAILY

REACTIONS (3)
  - Gallbladder enlargement [Recovered/Resolved]
  - Diarrhoea [Not Recovered/Not Resolved]
  - Faeces discoloured [Not Recovered/Not Resolved]
